FAERS Safety Report 10388629 (Version 1)
Quarter: 2014Q3

REPORT INFORMATION
  Report Type: Report from Study
  Country: US (occurrence: US)
  Receive Date: 20140815
  Receipt Date: 20140815
  Transmission Date: 20150326
  Serious: Yes (Other)
  Sender: FDA-Public Use
  Company Number: US-ABBVIE-14P-163-1271428-00

PATIENT
  Age: 30 Year
  Sex: Female

DRUGS (6)
  1. FOLIC ACID. [Concomitant]
     Active Substance: FOLIC ACID
     Indication: PRODUCT USED FOR UNKNOWN INDICATION
  2. HUMIRA [Suspect]
     Active Substance: ADALIMUMAB
     Indication: RHEUMATOID ARTHRITIS
     Dates: start: 201211
  3. CELEBREX [Concomitant]
     Active Substance: CELECOXIB
     Indication: PAIN
     Dosage: 2-3 TIMES A WEEK
  4. IBUPROFEN. [Concomitant]
     Active Substance: IBUPROFEN
     Indication: PAIN
     Dosage: 2-3 TIMES A WEEK
  5. MECLIZINE [Suspect]
     Active Substance: MECLIZINE\MECLIZINE HYDROCHLORIDE
     Indication: DIZZINESS
     Dosage: 25 MG THREE TIMES A DAY FOR FIVE DAY
  6. METHOTREXATE (METHOTREXATE SODIUM) [Concomitant]
     Active Substance: METHOTREXATE SODIUM
     Indication: PRODUCT USED FOR UNKNOWN INDICATION

REACTIONS (16)
  - Pain [Not Recovered/Not Resolved]
  - Hypotension [Unknown]
  - Pruritus [Not Recovered/Not Resolved]
  - Blindness [Not Recovered/Not Resolved]
  - Loss of consciousness [Unknown]
  - Rash [Not Recovered/Not Resolved]
  - Heart rate decreased [Unknown]
  - Headache [Recovered/Resolved]
  - Headache [Not Recovered/Not Resolved]
  - Injection site papule [Not Recovered/Not Resolved]
  - Dyspnoea [Unknown]
  - Injection site bruising [Unknown]
  - Arthralgia [Unknown]
  - Dizziness [Unknown]
  - Costochondritis [Unknown]
  - Migraine [Unknown]

NARRATIVE: CASE EVENT DATE: 201211
